FAERS Safety Report 25476687 (Version 1)
Quarter: 2025Q2

REPORT INFORMATION
  Report Type: Spontaneous
  Country: CA (occurrence: CA)
  Receive Date: 20250625
  Receipt Date: 20250625
  Transmission Date: 20250717
  Serious: Yes (Life-Threatening, Hospitalization)
  Sender: ROCHE
  Company Number: CA-ROCHE-10000319252

PATIENT
  Age: 66 Year
  Sex: Female
  Weight: 85 kg

DRUGS (24)
  1. RITUXIMAB [Suspect]
     Active Substance: RITUXIMAB
     Indication: Myositis
     Route: 065
  2. SEMAGLUTIDE [Suspect]
     Active Substance: SEMAGLUTIDE
     Indication: Diabetes mellitus
     Route: 058
  3. SEMAGLUTIDE [Suspect]
     Active Substance: SEMAGLUTIDE
     Route: 048
  4. JARDIANCE [Suspect]
     Active Substance: EMPAGLIFLOZIN
     Indication: Blood glucose increased
     Route: 048
  5. PREDNISONE [Suspect]
     Active Substance: PREDNISONE
     Indication: Myositis
     Route: 065
  6. ACETAMINOPHEN [Concomitant]
     Active Substance: ACETAMINOPHEN
     Route: 048
  7. ASPIRIN [Concomitant]
     Active Substance: ASPIRIN
     Route: 048
  8. BENADRYL [Concomitant]
     Active Substance: DIPHENHYDRAMINE HYDROCHLORIDE
     Route: 048
  9. CALCIUM [Concomitant]
     Active Substance: CALCIUM
  10. BENADRYL [Concomitant]
     Active Substance: DIPHENHYDRAMINE HYDROCHLORIDE
  11. FOLIC ACID [Concomitant]
     Active Substance: FOLIC ACID
  12. HUMALOG [Concomitant]
     Active Substance: INSULIN LISPRO
  13. LEVEMIR [Concomitant]
     Active Substance: INSULIN DETEMIR
     Route: 058
  14. METHOTREXATE [Concomitant]
     Active Substance: METHOTREXATE
     Route: 048
  15. METHYLPREDNISOLONE SODIUM SUCCINATE [Concomitant]
     Active Substance: METHYLPREDNISOLONE SODIUM SUCCINATE
     Route: 042
  16. NADOLOL [Concomitant]
     Active Substance: NADOLOL
  17. PAROXETINE [Concomitant]
     Active Substance: PAROXETINE
  18. RAMIPRIL [Concomitant]
     Active Substance: RAMIPRIL
  19. RISEDRONATE SODIUM [Concomitant]
     Active Substance: RISEDRONATE SODIUM
  20. RISEDRONATE SODIUM [Concomitant]
     Active Substance: RISEDRONATE SODIUM
  21. ROSUVASTATIN [Concomitant]
     Active Substance: ROSUVASTATIN
  22. TYLENOL [Concomitant]
     Active Substance: ACETAMINOPHEN
     Route: 048
  23. VITAMIN D3 [Concomitant]
     Active Substance: CHOLECALCIFEROL
  24. ZANTAC [Concomitant]
     Active Substance: RANITIDINE HYDROCHLORIDE

REACTIONS (13)
  - Aortic arteriosclerosis [Recovered/Resolved]
  - Blood glucose increased [Recovered/Resolved]
  - Blood pressure diastolic abnormal [Recovered/Resolved]
  - Blood pressure diastolic decreased [Recovered/Resolved]
  - Blood pressure fluctuation [Recovered/Resolved]
  - Blood pressure increased [Recovered/Resolved]
  - Blood pressure systolic increased [Recovered/Resolved]
  - Diabetic ketoacidosis [Recovered/Resolved]
  - Intentional product use issue [Unknown]
  - Oxygen saturation decreased [Recovered/Resolved]
  - Type 2 diabetes mellitus [Recovered/Resolved]
  - Weight increased [Recovered/Resolved]
  - Weight decreased [Recovered/Resolved]
